FAERS Safety Report 5231458-6 (Version None)
Quarter: 2007Q1

REPORT INFORMATION
  Report Type: 
  Country: None (occurrence: None)
  Receive Date: 20070202
  Receipt Date: 20070126
  Transmission Date: 20070707
  Serious: Yes (Other)
  Sender: FDA-Public Use
  Company Number: 163-20785-07011395

PATIENT
  Sex: Female

DRUGS (3)
  1. THALOMID [Suspect]
     Indication: LYMPHOMA
     Dosage: 100 + 200 -100 + 50 - 300 MG, 2 IN 1 D, ORAL - SEE IMAGE
     Route: 048
     Dates: start: 20020110, end: 20020101
  2. THALOMID [Suspect]
     Indication: LYMPHOMA
     Dosage: 100 + 200 -100 + 50 - 300 MG, 2 IN 1 D, ORAL - SEE IMAGE
     Route: 048
     Dates: start: 20041019, end: 20050801
  3. THALOMID [Suspect]
     Indication: LYMPHOMA
     Dosage: 100 + 200 -100 + 50 - 300 MG, 2 IN 1 D, ORAL - SEE IMAGE
     Route: 048
     Dates: start: 20051011

REACTIONS (3)
  - BLINDNESS [None]
  - DEAFNESS [None]
  - HYPOAESTHESIA [None]
